FAERS Safety Report 8910579 (Version 1)
Quarter: 2012Q4

REPORT INFORMATION
  Report Type: 
  Country: US (occurrence: US)
  Receive Date: 20121114
  Receipt Date: 20121114
  Transmission Date: 20130627
  Serious: Yes (Death)
  Sender: FDA-Public Use
  Company Number: US-GLAXOSMITHKLINE-A1000563A

PATIENT
  Age: 91 Year
  Sex: Male

DRUGS (14)
  1. PROMACTA [Suspect]
     Indication: IDIOPATHIC THROMBOCYTOPENIC PURPURA
     Dosage: 25MG Per day
     Route: 048
     Dates: start: 20111111
  2. MORPHINE [Concomitant]
  3. OXYCONTIN [Concomitant]
  4. RAMIPRIL [Concomitant]
  5. UNKNOWN [Concomitant]
  6. WARFARIN [Concomitant]
  7. ALPRAZOLAM [Concomitant]
  8. TAMSULOSIN [Concomitant]
  9. NITROSTAT [Concomitant]
  10. DILTIAZEM [Concomitant]
  11. COREG [Concomitant]
  12. CARVEDILOL [Concomitant]
  13. AMLODIPINE [Concomitant]
  14. PROSCAR [Concomitant]

REACTIONS (1)
  - Death [Fatal]
